FAERS Safety Report 6941092-5 (Version None)
Quarter: 2010Q3

REPORT INFORMATION
  Report Type: 
  Country: None (occurrence: None)
  Receive Date: 20100825
  Receipt Date: 20100817
  Transmission Date: 20110219
  Serious: Yes (Other)
  Sender: FDA-Public Use
  Company Number: US-PFIZER INC-2010104152

PATIENT
  Sex: Female
  Weight: 53.061 kg

DRUGS (3)
  1. GEODON [Suspect]
     Dosage: 20 MG, 1X/DAY
     Route: 048
     Dates: start: 20100729
  2. KLONOPIN [Concomitant]
     Dosage: 2 MG, UNK
  3. MAPROTILINE [Concomitant]
     Dosage: UNK

REACTIONS (1)
  - SUICIDAL IDEATION [None]
